FAERS Safety Report 20957240 (Version 2)
Quarter: 2023Q1

REPORT INFORMATION
  Report Type: Spontaneous
  Country: JP (occurrence: None)
  Receive Date: 20220614
  Receipt Date: 20230228
  Transmission Date: 20230418
  Serious: Yes (Other)
  Sender: FDA-Public Use
  Company Number: 2022A216954

PATIENT
  Age: 57 Year
  Sex: Female
  Weight: 44 kg

DRUGS (7)
  1. LYNPARZA [Suspect]
     Active Substance: OLAPARIB
     Indication: Ovarian cancer recurrent
     Route: 048
     Dates: start: 20211109, end: 20220405
  2. METOCLOPRAMIDE [Concomitant]
     Active Substance: METOCLOPRAMIDE
     Indication: Nausea
     Route: 048
     Dates: start: 20211130
  3. LEVOFLOXACIN HEMIHYDRATE [Concomitant]
     Active Substance: LEVOFLOXACIN
     Indication: Cystitis
     Route: 048
     Dates: start: 20211228, end: 20220103
  4. KETOPROFEN [Concomitant]
     Active Substance: KETOPROFEN
     Indication: Myalgia
     Route: 062
     Dates: start: 20220208
  5. SENNOSIDES [Concomitant]
     Active Substance: SENNOSIDES
     Indication: Constipation
     Route: 048
     Dates: start: 20220222
  6. LOXOPROFEN [Concomitant]
     Active Substance: LOXOPROFEN
     Indication: Headache
     Route: 048
     Dates: start: 20220222
  7. ZYPREXA [Concomitant]
     Active Substance: OLANZAPINE
     Indication: Nausea
     Route: 048
     Dates: start: 20220222

REACTIONS (3)
  - Interstitial lung disease [Recovered/Resolved]
  - Cough [Recovering/Resolving]
  - SARS-CoV-2 test negative [Unknown]

NARRATIVE: CASE EVENT DATE: 20220330
